FAERS Safety Report 7615610-8 (Version None)
Quarter: 2011Q3

REPORT INFORMATION
  Report Type: 
  Country: None (occurrence: None)
  Receive Date: 20110711
  Receipt Date: 20110613
  Transmission Date: 20111222
  Serious: Yes (Death)
  Sender: FDA-Public Use
  Company Number: 15507510

PATIENT
  Age: 60 Year
  Sex: Male

DRUGS (6)
  1. WARFARIN SODIUM [Suspect]
     Indication: THROMBOSIS PROPHYLAXIS
     Dosage: 7 MILLIGRAM 1 DAY ORAL
     Route: 048
     Dates: start: 20100126, end: 20110121
  2. PLACEBO [Suspect]
     Indication: THROMBOSIS PROPHYLAXIS
     Dosage: ORAL
     Route: 048
     Dates: start: 20100126, end: 20110121
  3. NEBIVOLOL HCL [Concomitant]
  4. PERINDOPRIL (PERINDOPRIL) [Concomitant]
  5. INDAPAMID (INDAPAMIDE) [Concomitant]
  6. ASPIRIN [Concomitant]

REACTIONS (1)
  - CARDIAC FAILURE ACUTE [None]
